FAERS Safety Report 6198196-7 (Version None)
Quarter: 2009Q2

REPORT INFORMATION
  Report Type: 
  Country: None (occurrence: None)
  Receive Date: 20090521
  Receipt Date: 20090512
  Transmission Date: 20091009
  Serious: Yes (Hospitalization)
  Sender: FDA-Public Use
  Company Number: DE-MERCK-0905DEU00036

PATIENT
  Age: 34 Year
  Sex: Female

DRUGS (11)
  1. CANCIDAS [Suspect]
     Indication: BRONCHOPULMONARY ASPERGILLOSIS
     Route: 042
     Dates: start: 20040101, end: 20040101
  2. CANCIDAS [Suspect]
     Route: 042
     Dates: start: 20040101, end: 20050101
  3. CANCIDAS [Suspect]
     Indication: CEREBRAL ASPERGILLOSIS
     Route: 042
     Dates: start: 20040101, end: 20040101
  4. CANCIDAS [Suspect]
     Route: 042
     Dates: start: 20040101, end: 20050101
  5. AMPHOTERICIN B AND CHOLESTEROL AND DISTEAROYLPHOSPHATIDYLGLYCEROL AND [Concomitant]
     Indication: BRONCHOPULMONARY ASPERGILLOSIS
     Route: 042
     Dates: start: 20040101, end: 20040101
  6. AMPHOTERICIN B AND CHOLESTEROL AND DISTEAROYLPHOSPHATIDYLGLYCEROL AND [Concomitant]
     Indication: CEREBRAL ASPERGILLOSIS
     Route: 042
     Dates: start: 20040101, end: 20040101
  7. VORICONAZOLE [Concomitant]
     Indication: BRONCHOPULMONARY ASPERGILLOSIS
     Route: 042
     Dates: start: 20040101, end: 20040101
  8. VORICONAZOLE [Concomitant]
     Route: 048
     Dates: start: 20040101, end: 20050101
  9. VORICONAZOLE [Concomitant]
     Indication: CEREBRAL ASPERGILLOSIS
     Route: 042
     Dates: start: 20040101, end: 20040101
  10. VORICONAZOLE [Concomitant]
     Route: 048
     Dates: start: 20040101, end: 20050101
  11. SIROLIMUS [Concomitant]
     Indication: IMMUNOSUPPRESSION
     Route: 065
     Dates: start: 20040101, end: 20040101

REACTIONS (1)
  - DRUG EFFECT DECREASED [None]
